FAERS Safety Report 13163266 (Version 1)
Quarter: 2017Q1

REPORT INFORMATION
  Report Type: Spontaneous
  Country: US (occurrence: US)
  Receive Date: 20170129
  Receipt Date: 20170129
  Transmission Date: 20170428
  Serious: No
  Sender: FDA-Public Use
  Company Number: None

PATIENT
  Age: 21 Year
  Sex: Female
  Weight: 60.3 kg

DRUGS (1)
  1. MINOCYCLINE 100MG MFR.WATSON LABS/DIST [Suspect]
     Active Substance: MINOCYCLINE\MINOCYCLINE HYDROCHLORIDE
     Indication: ACNE
     Dosage: ?          QUANTITY:1 CAPSULE(S);?
     Route: 048
     Dates: start: 20170119, end: 20170128

REACTIONS (9)
  - Disturbance in attention [None]
  - Confusional state [None]
  - Memory impairment [None]
  - Head discomfort [None]
  - Photophobia [None]
  - Anxiety [None]
  - Thinking abnormal [None]
  - Mental disorder [None]
  - Mood altered [None]

NARRATIVE: CASE EVENT DATE: 20170128
